FAERS Safety Report 21403604 (Version 1)
Quarter: 2022Q4

REPORT INFORMATION
  Report Type: Report from Study
  Country: AU (occurrence: None)
  Receive Date: 20221003
  Receipt Date: 20221003
  Transmission Date: 20230112
  Serious: Yes (Hospitalization, Other)
  Sender: FDA-Public Use
  Company Number: 2020SF41417

PATIENT
  Age: 25687 Day
  Sex: Female

DRUGS (13)
  1. DURVALUMAB [Suspect]
     Active Substance: DURVALUMAB
     Indication: Ovarian cancer
     Route: 042
     Dates: start: 20190910, end: 20201028
  2. TREMELIMUMAB [Suspect]
     Active Substance: TREMELIMUMAB
     Indication: Ovarian cancer
     Route: 042
     Dates: start: 20190910, end: 20201028
  3. UNSPECIFIED INGREDIENT [Suspect]
     Active Substance: UNSPECIFIED INGREDIENT
     Indication: Ovarian cancer
     Dates: start: 20191130
  4. CARBOPLATIN [Suspect]
     Active Substance: CARBOPLATIN
     Indication: Ovarian cancer
     Route: 042
     Dates: start: 20190910, end: 20200924
  5. PACLITAXEL [Suspect]
     Active Substance: PACLITAXEL
     Indication: Ovarian cancer
     Dosage: 285 MG
     Route: 042
     Dates: start: 20190910, end: 20200924
  6. COLOXYL [Concomitant]
     Indication: Constipation
     Route: 048
     Dates: start: 20190824
  7. LIPITOR [Concomitant]
     Active Substance: ATORVASTATIN CALCIUM
     Indication: Hypercholesterolaemia
     Route: 048
     Dates: start: 20161012
  8. HYDROCHLOROTHIAZIDE\OLMESARTAN MEDOXOMIL [Concomitant]
     Active Substance: HYDROCHLOROTHIAZIDE\OLMESARTAN MEDOXOMIL
     Indication: Hypertension
     Route: 048
     Dates: start: 20200709
  9. PANTOPRAZOLE SODIUM [Concomitant]
     Active Substance: PANTOPRAZOLE SODIUM
     Indication: Hiatus hernia
     Route: 048
     Dates: start: 20120323
  10. ZANDIP [Concomitant]
     Indication: Hypertension
     Route: 048
     Dates: start: 20161012
  11. METOPROLOL [Concomitant]
     Active Substance: METOPROLOL
     Indication: Hypertension
     Route: 048
     Dates: start: 20071109
  12. DITRAPAN [Concomitant]
     Indication: Hot flush
     Route: 048
     Dates: start: 20200108
  13. OSMOLAX [Concomitant]
     Indication: Constipation
     Dosage: 1-2 SACCHET DAILY
     Route: 048
     Dates: start: 20200923

REACTIONS (2)
  - Adrenal insufficiency [Recovered/Resolved]
  - Dehydration [Recovered/Resolved]

NARRATIVE: CASE EVENT DATE: 20201028
